FAERS Safety Report 10032669 (Version 1)
Quarter: 2014Q1

REPORT INFORMATION
  Report Type: Spontaneous
  Country: US (occurrence: US)
  Receive Date: 20140324
  Receipt Date: 20140324
  Transmission Date: 20141002
  Serious: No
  Sender: FDA-Public Use
  Company Number: US-PFIZER INC-2014081418

PATIENT
  Age: 16 Year
  Sex: Male
  Weight: 43.54 kg

DRUGS (17)
  1. ZYVOX [Suspect]
     Indication: EXFOLIATION SYNDROME
     Dosage: UNK
     Dates: start: 201401
  2. INSULIN [Concomitant]
     Dosage: UNK
  3. LANTUS [Concomitant]
     Dosage: UNK
  4. TACROLIMUS [Concomitant]
     Dosage: UNK
  5. CALCIFEROL [Concomitant]
     Dosage: UNK
  6. VITAMIN D [Concomitant]
     Dosage: UNK
  7. LOSARTAN [Concomitant]
     Indication: BLOOD PRESSURE ABNORMAL
     Dosage: UNK
  8. HYDROCHLOROTHIAZIDE [Concomitant]
     Dosage: UNK
  9. ZYRTEC [Concomitant]
     Dosage: UNK
  10. PENTAMIDINE [Concomitant]
     Dosage: UNK, MONTHLY
  11. ZOLEDRONIC ACID [Concomitant]
     Dosage: UNK
  12. BENADRYL [Concomitant]
     Dosage: UNK
  13. TRIAMTERENE [Concomitant]
     Dosage: UNK
  14. HYDROCORTISONE [Concomitant]
     Dosage: UNK
  15. CALCIUM [Concomitant]
     Dosage: UNK
  16. DOXYCYCLINE [Concomitant]
     Dosage: UNK
  17. PREDNISOLONE [Concomitant]
     Dosage: UNK

REACTIONS (2)
  - Psoriasis [Unknown]
  - Therapeutic response unexpected [Unknown]
